FAERS Safety Report 19921136 (Version 2)
Quarter: 2021Q4

REPORT INFORMATION
  Report Type: Spontaneous
  Country: FR (occurrence: None)
  Receive Date: 20211005
  Receipt Date: 20211111
  Transmission Date: 20220303
  Serious: Yes (Hospitalization)
  Sender: FDA-Public Use
  Company Number: FR-JNJFOC-20210916211

PATIENT
  Age: 16 Year
  Sex: Female
  Weight: 38.8 kg

DRUGS (35)
  1. ACETAMINOPHEN [Suspect]
     Active Substance: ACETAMINOPHEN
     Indication: Product used for unknown indication
     Route: 065
  2. FERROUS FUMARATE [Suspect]
     Active Substance: FERROUS FUMARATE
     Indication: Product used for unknown indication
     Dosage: 25
     Route: 065
  3. LOPERAMIDE HYDROCHLORIDE [Suspect]
     Active Substance: LOPERAMIDE HYDROCHLORIDE
     Indication: Product used for unknown indication
     Dosage: 12 IMODIUM
     Route: 065
  4. PHLOROGLUCINOL [Suspect]
     Active Substance: PHLOROGLUCINOL
     Indication: Product used for unknown indication
     Dosage: 10
     Route: 065
  5. ANETHOLTRITHION [Suspect]
     Active Substance: ANETHOLTRITHION
     Indication: Product used for unknown indication
     Dosage: 60
     Route: 065
  6. IBUPROFEN [Suspect]
     Active Substance: IBUPROFEN
     Indication: Product used for unknown indication
     Dosage: 23 CP
     Route: 065
  7. MORPHINE SULFATE [Concomitant]
     Active Substance: MORPHINE SULFATE
     Indication: Major depression
     Route: 048
     Dates: start: 20210427, end: 20210430
  8. MORPHINE SULFATE [Concomitant]
     Active Substance: MORPHINE SULFATE
     Route: 048
     Dates: start: 20210427
  9. CYAMEMAZINE [Concomitant]
     Active Substance: CYAMEMAZINE
     Indication: Panic attack
     Route: 048
     Dates: start: 20210525
  10. CYAMEMAZINE [Concomitant]
     Active Substance: CYAMEMAZINE
     Indication: Panic attack
     Route: 048
     Dates: start: 20210402, end: 20210404
  11. CYAMEMAZINE [Concomitant]
     Active Substance: CYAMEMAZINE
     Route: 048
     Dates: start: 20210406, end: 20210406
  12. CYAMEMAZINE [Concomitant]
     Active Substance: CYAMEMAZINE
     Route: 048
     Dates: start: 20210407, end: 20210427
  13. CYAMEMAZINE [Concomitant]
     Active Substance: CYAMEMAZINE
     Route: 048
     Dates: start: 20210331, end: 20210331
  14. CYAMEMAZINE [Concomitant]
     Active Substance: CYAMEMAZINE
     Route: 048
     Dates: start: 20210401, end: 20210401
  15. CYAMEMAZINE [Concomitant]
     Active Substance: CYAMEMAZINE
     Route: 048
     Dates: start: 20210405, end: 20210405
  16. CHLORPROMAZINE [Concomitant]
     Active Substance: CHLORPROMAZINE
     Indication: Panic attack
     Route: 048
     Dates: start: 20210427
  17. ACETYLCYSTEINE [Concomitant]
     Active Substance: ACETYLCYSTEINE
     Indication: Product used for unknown indication
     Route: 042
     Dates: start: 20210904, end: 20210905
  18. POLYETHYLENE GLYCOLS [Concomitant]
     Active Substance: POLYETHYLENE GLYCOLS
     Indication: Constipation prophylaxis
     Route: 048
     Dates: start: 20210427
  19. FLUOXETINE [Concomitant]
     Active Substance: FLUOXETINE HYDROCHLORIDE
     Indication: Major depression
     Dosage: 20 TABLETS DAILY
     Route: 048
     Dates: start: 20210402, end: 20210415
  20. FLUOXETINE [Concomitant]
     Active Substance: FLUOXETINE HYDROCHLORIDE
     Indication: Major depression
     Route: 048
     Dates: start: 20210416, end: 20210427
  21. FLUOXETINE [Concomitant]
     Active Substance: FLUOXETINE HYDROCHLORIDE
     Route: 048
     Dates: start: 20210428
  22. MIRTAZAPINE [Concomitant]
     Active Substance: MIRTAZAPINE
     Indication: Panic attack
     Route: 048
     Dates: start: 20210608
  23. SENNOSIDES A AND B [Concomitant]
     Active Substance: SENNOSIDES A AND B
     Indication: Constipation prophylaxis
     Route: 048
     Dates: start: 20210427
  24. ZOLPIDEM [Concomitant]
     Active Substance: ZOLPIDEM TARTRATE
     Indication: Sleep disorder
     Route: 048
     Dates: start: 20210331
  25. ALPRAZOLAM [Concomitant]
     Active Substance: ALPRAZOLAM
     Indication: Panic attack
     Route: 048
     Dates: start: 20210423
  26. PRAZEPAM [Concomitant]
     Active Substance: PRAZEPAM
     Indication: Panic attack
     Route: 048
     Dates: start: 20210520
  27. PRAZEPAM [Concomitant]
     Active Substance: PRAZEPAM
     Route: 048
     Dates: start: 20210428, end: 20210513
  28. PRAZEPAM [Concomitant]
     Active Substance: PRAZEPAM
     Route: 048
     Dates: start: 20210409, end: 20210427
  29. PRAZEPAM [Concomitant]
     Active Substance: PRAZEPAM
     Route: 048
     Dates: start: 20210514, end: 20210519
  30. ANETHOLTRITHION [Concomitant]
     Active Substance: ANETHOLTRITHION
     Indication: Prophylaxis
     Route: 048
     Dates: start: 20210408
  31. TROPATEPINE [Concomitant]
     Active Substance: TROPATEPINE
     Indication: Prophylaxis
     Route: 048
     Dates: start: 20210427
  32. FERROUS FUMARATE [Concomitant]
     Active Substance: FERROUS FUMARATE
     Indication: Anaemia
     Route: 048
     Dates: start: 20210520
  33. DIAZEPAM [Concomitant]
     Active Substance: DIAZEPAM
     Indication: Panic attack
     Route: 048
     Dates: start: 20210403, end: 20210409
  34. HYDROXYZINE [Concomitant]
     Active Substance: HYDROXYZINE HYDROCHLORIDE
     Indication: Anxiety
     Route: 065
  35. HYDROXYZINE [Concomitant]
     Active Substance: HYDROXYZINE HYDROCHLORIDE
     Indication: Panic attack
     Route: 048
     Dates: start: 20210423, end: 20210424

REACTIONS (1)
  - Suicide attempt [Recovered/Resolved]

NARRATIVE: CASE EVENT DATE: 20210903
